FAERS Safety Report 15103463 (Version 1)
Quarter: 2018Q3

REPORT INFORMATION
  Report Type: Spontaneous
  Country: DE (occurrence: DE)
  Receive Date: 20180703
  Receipt Date: 20180703
  Transmission Date: 20181010
  Serious: Yes (Other)
  Sender: FDA-Public Use
  Company Number: DE-PIERREL PHARMA S.P.A.-2018PIR00010

PATIENT
  Age: 38 Year
  Sex: Male

DRUGS (1)
  1. ARTICAINE 4% WITH ADRENALINE 1:100,000 [Suspect]
     Active Substance: ARTICAINE\EPINEPHRINE
     Indication: LOCAL ANAESTHESIA
     Dosage: UNK, ONCE (INJECTED INTO THE LEFT UPPER JAW)
     Route: 065

REACTIONS (3)
  - Incorrect route of drug administration [Recovered/Resolved]
  - Retinal artery occlusion [Recovered/Resolved]
  - Blindness unilateral [Recovered/Resolved]
